FAERS Safety Report 4363096-1 (Version None)
Quarter: 2004Q2

REPORT INFORMATION
  Report Type: 
  Country: None (occurrence: None)
  Receive Date: 20040517
  Receipt Date: 20040308
  Transmission Date: 20050107
  Serious: No
  Sender: FDA-Public Use
  Company Number: S04-USA-01774-01

PATIENT
  Age: 77 Year
  Sex: Female

DRUGS (12)
  1. NAMENDA [Suspect]
     Indication: DEMENTIA ALZHEIMER'S TYPE
     Dosage: 10 MG BID PO
     Route: 048
     Dates: start: 20040229
  2. NAMENDA [Suspect]
     Indication: DEMENTIA ALZHEIMER'S TYPE
     Dosage: 5 MG QD PO
     Route: 048
     Dates: start: 20040208, end: 20040214
  3. NAMENDA [Suspect]
     Indication: DEMENTIA ALZHEIMER'S TYPE
     Dosage: 10 MG QD PO
     Route: 048
     Dates: start: 20040215, end: 20040221
  4. NAMENDA [Suspect]
     Indication: DEMENTIA ALZHEIMER'S TYPE
     Dosage: 15 MG QD PO
     Route: 048
     Dates: start: 20040222, end: 20040228
  5. REMINYL [Concomitant]
  6. EVISTA [Concomitant]
  7. SYNTHROID (LEVOTHYROXIINE SODIUM) [Concomitant]
  8. REGLAN [Concomitant]
  9. THEOPHYLLINE [Concomitant]
  10. LISINOPRIL [Concomitant]
  11. COUMADIN [Concomitant]
  12. CLARITIN [Concomitant]

REACTIONS (1)
  - BLOOD GLUCOSE INCREASED [None]
